FAERS Safety Report 7737744-X (Version None)
Quarter: 2011Q3

REPORT INFORMATION
  Report Type: 
  Country: None (occurrence: None)
  Receive Date: 20110902
  Receipt Date: 20110826
  Transmission Date: 20111222
  Serious: Yes (Hospitalization)
  Sender: FDA-Public Use
  Company Number: 2011MA012692

PATIENT
  Sex: Female

DRUGS (1)
  1. DOXAZOSIN MESYLATE [Suspect]
     Dosage: 2 MG, PO
     Route: 048
     Dates: start: 20110822

REACTIONS (4)
  - BLOOD PRESSURE DECREASED [None]
  - CIRCUMSTANCE OR INFORMATION CAPABLE OF LEADING TO MEDICATION ERROR [None]
  - WRONG DRUG ADMINISTERED [None]
  - DRUG DISPENSING ERROR [None]
